FAERS Safety Report 7591942-7 (Version None)
Quarter: 2011Q3

REPORT INFORMATION
  Report Type: 
  Country: None (occurrence: None)
  Receive Date: 20110706
  Receipt Date: 20110701
  Transmission Date: 20111222
  Serious: No
  Sender: FDA-Public Use
  Company Number: US-BAYER-2011-057703

PATIENT
  Sex: Female

DRUGS (2)
  1. YASMIN [Suspect]
     Indication: PRODUCT USED FOR UNKNOWN INDICATION
     Dosage: UNK
     Route: 048
  2. YAZ [Suspect]
     Indication: ENDOMETRIOSIS
     Dosage: UNK, QD
     Route: 048
     Dates: start: 20070101, end: 20101201

REACTIONS (7)
  - ABNORMAL FAECES [None]
  - WEIGHT DECREASED [None]
  - MALAISE [None]
  - BURNING SENSATION [None]
  - ASTHENIA [None]
  - SKIN BURNING SENSATION [None]
  - FAECES DISCOLOURED [None]
